FAERS Safety Report 17493285 (Version 1)
Quarter: 2020Q1

REPORT INFORMATION
  Report Type: Spontaneous
  Country: US (occurrence: US)
  Receive Date: 20200304
  Receipt Date: 20200304
  Transmission Date: 20200409
  Serious: Yes (Hospitalization)
  Sender: FDA-Public Use
  Company Number: US-EMCURE PHARMACEUTICALS LTD-2020-EPL-000203

PATIENT
  Age: 6 Month
  Sex: Male
  Weight: 6.3 kg

DRUGS (5)
  1. CINACALCET. [Suspect]
     Active Substance: CINACALCET
     Indication: HYPERPARATHYROIDISM SECONDARY
     Dosage: 3 MILLIGRAM PER DAY (0.4 MG/KG/DAY) IN 2 DIVIDED DOSES
  2. PREDNISONE. [Concomitant]
     Active Substance: PREDNISONE
     Indication: BRONCHOPULMONARY DYSPLASIA
     Dosage: 0.5 MG/KG EVERY 48 HOURS
  3. FUROSEMIDE. [Suspect]
     Active Substance: FUROSEMIDE
     Indication: BRONCHOPULMONARY DYSPLASIA
     Dosage: 3 MG/KG PER DAY
  4. FUROSEMIDE. [Suspect]
     Active Substance: FUROSEMIDE
     Dosage: UNK
  5. CHLOROTHIAZIDE. [Concomitant]
     Active Substance: CHLOROTHIAZIDE
     Indication: BRONCHOPULMONARY DYSPLASIA
     Dosage: 22.5 MG/KG PER DAY

REACTIONS (4)
  - Off label use [Unknown]
  - Hyperparathyroidism secondary [Recovered/Resolved]
  - Bone density decreased [Recovered/Resolved]
  - Neonatal hypocalcaemia [Recovered/Resolved]
